FAERS Safety Report 8876495 (Version 1)
Quarter: 2012Q4

REPORT INFORMATION
  Report Type: 
  Country: US (occurrence: US)
  Receive Date: 20121023
  Receipt Date: 20121023
  Transmission Date: 20130627
  Serious: No
  Sender: FDA-Public Use
  Company Number: US-ASTELLAS-2012US003552

PATIENT
  Age: 60 Year
  Sex: Female
  Weight: 64 kg

DRUGS (11)
  1. PROGRAF [Suspect]
     Indication: LIVER TRANSPLANT
     Dosage: 5 mg, bid
     Route: 048
     Dates: start: 20110525
  2. PROTONIX [Concomitant]
     Indication: GASTRIC DISORDER
     Dosage: UNK
     Route: 048
     Dates: start: 2010
  3. LASIX [Concomitant]
     Indication: FLUID RETENTION
     Dosage: 1 DF, 2XWeekly
     Route: 048
     Dates: start: 2009
  4. ZOLOFT [Concomitant]
     Indication: DEPRESSION
     Dosage: 1 DF, UID/QD
     Route: 048
     Dates: start: 2008
  5. SEROQUEL [Concomitant]
     Indication: ANXIETY
     Dosage: 1 tablet in the morning + 3 tablets in the evening
     Route: 048
     Dates: start: 201105
  6. SEROQUEL [Concomitant]
     Indication: SLEEP DISORDER
  7. AMBIEN [Concomitant]
     Indication: SLEEP DISORDER
     Dosage: 1 DF, UID/QD
     Route: 048
     Dates: start: 201104
  8. LOPRESSOR [Concomitant]
     Indication: HYPERTENSION
     Dosage: 1 DF, bid
     Route: 048
     Dates: start: 20110525
  9. ADDERALL [Concomitant]
     Indication: ATTENTION DEFICIT/HYPERACTIVITY DISORDER
     Dosage: 2 DF, bid
     Route: 048
     Dates: start: 201104
  10. DAPSONE [Concomitant]
     Indication: PROPHYLAXIS
     Dosage: 1 DF, UID/QD
     Route: 048
     Dates: start: 201110
  11. FOSAMAX [Concomitant]
     Indication: OSTEOPOROSIS
     Dosage: 1 DF, Weekly
     Route: 048
     Dates: start: 2009

REACTIONS (6)
  - Seasonal allergy [Not Recovered/Not Resolved]
  - Haematocrit decreased [Not Recovered/Not Resolved]
  - Bronchitis [Not Recovered/Not Resolved]
  - Fatigue [Not Recovered/Not Resolved]
  - Dysstasia [Not Recovered/Not Resolved]
  - Pneumonia [Not Recovered/Not Resolved]
